FAERS Safety Report 4335106-9 (Version None)
Quarter: 2004Q2

REPORT INFORMATION
  Report Type: 
  Country: None (occurrence: None)
  Receive Date: 20040408
  Receipt Date: 20040330
  Transmission Date: 20050107
  Serious: Yes (Hospitalization)
  Sender: FDA-Public Use
  Company Number: PHRM2004FR01427

PATIENT
  Age: 54 Year
  Sex: Female

DRUGS (3)
  1. NISISCO [Suspect]
     Indication: HYPERTENSION
     Dosage: 1 DF, QD
     Route: 048
     Dates: end: 20040227
  2. CHONDROSULF [Concomitant]
     Indication: OSTEOARTHRITIS
     Route: 048
  3. ARIXTRA [Concomitant]
     Indication: THROMBOSIS PROPHYLAXIS
     Dosage: 2.5 MG, QD
     Dates: start: 20040126, end: 20040219

REACTIONS (3)
  - CONFUSIONAL STATE [None]
  - SPEECH DISORDER [None]
  - TRANSIENT ISCHAEMIC ATTACK [None]
